FAERS Safety Report 13460029 (Version 1)
Quarter: 2017Q2

REPORT INFORMATION
  Report Type: Spontaneous
  Country: US (occurrence: US)
  Receive Date: 20170420
  Receipt Date: 20170420
  Transmission Date: 20170830
  Serious: No
  Sender: FDA-Public Use
  Company Number: US-TEVA-711941USA

PATIENT
  Sex: Male

DRUGS (1)
  1. ZOLPIDEM [Suspect]
     Active Substance: ZOLPIDEM\ZOLPIDEM TARTRATE

REACTIONS (5)
  - Product substitution issue [Unknown]
  - Mental disorder [Not Recovered/Not Resolved]
  - Drug effect incomplete [Unknown]
  - Suspected counterfeit product [Unknown]
  - Insomnia [Not Recovered/Not Resolved]
